FAERS Safety Report 7982769-2 (Version None)
Quarter: 2011Q4

REPORT INFORMATION
  Report Type: 
  Country: None (occurrence: None)
  Receive Date: 20111215
  Receipt Date: 20111205
  Transmission Date: 20120403
  Serious: Yes (Death, Life-Threatening, Other)
  Sender: FDA-Public Use
  Company Number: US-BAXTER-2010BH001339

PATIENT
  Age: 35 Year
  Sex: Male
  Weight: 71 kg

DRUGS (21)
  1. HEPARIN SODIUM 5,000 UNITS IN DEXTROSE 5% [Suspect]
     Route: 041
     Dates: start: 20080113, end: 20080113
  2. HEPARIN SODIUM INJECTION [Suspect]
     Route: 040
     Dates: start: 20080112, end: 20080112
  3. PANTOPRAZOLE [Concomitant]
     Indication: PRODUCT USED FOR UNKNOWN INDICATION
     Route: 065
     Dates: start: 20080107
  4. FENTANYL [Concomitant]
     Indication: PRODUCT USED FOR UNKNOWN INDICATION
     Route: 065
     Dates: start: 20080109
  5. HEPARIN SODIUM 5,000 UNITS IN DEXTROSE 5% [Suspect]
     Indication: PERITONEAL DIALYSIS
     Route: 041
     Dates: start: 20080112, end: 20080112
  6. SYNTHROID [Concomitant]
     Indication: PRODUCT USED FOR UNKNOWN INDICATION
     Route: 065
  7. LEVAQUIN [Concomitant]
     Indication: PRODUCT USED FOR UNKNOWN INDICATION
     Route: 042
     Dates: start: 20080109
  8. HEPARIN SODIUM INJECTION [Suspect]
     Indication: CHOLECYSTECTOMY
     Route: 041
     Dates: start: 20080109, end: 20080109
  9. HEPARIN SODIUM INJECTION [Suspect]
     Route: 040
     Dates: start: 20080113, end: 20080113
  10. COMPAZINE [Concomitant]
     Indication: PRODUCT USED FOR UNKNOWN INDICATION
     Route: 042
     Dates: start: 20080107
  11. PHENYLEPHRINE HCL [Concomitant]
     Indication: PRODUCT USED FOR UNKNOWN INDICATION
     Route: 065
     Dates: start: 20080109
  12. ACETAMINOPHEN [Concomitant]
     Indication: PYREXIA
     Route: 048
     Dates: start: 20080109
  13. HEPARIN SODIUM INJECTION [Suspect]
     Indication: PERITONEAL DIALYSIS
     Route: 041
     Dates: start: 20080109, end: 20080109
  14. HESPAN IN EXCEL PLASTIC CONTAINER [Concomitant]
     Indication: HYPOTENSION
     Route: 042
     Dates: start: 20080109
  15. UNASYN [Concomitant]
     Indication: PRODUCT USED FOR UNKNOWN INDICATION
     Route: 065
     Dates: start: 20080109
  16. HEPARIN SODIUM INJECTION [Suspect]
     Route: 040
     Dates: start: 20080112, end: 20080112
  17. ZOFRAN [Concomitant]
     Indication: PRODUCT USED FOR UNKNOWN INDICATION
     Route: 042
     Dates: start: 20080109
  18. DEXAMETHASONE [Concomitant]
     Indication: PRODUCT USED FOR UNKNOWN INDICATION
     Route: 042
     Dates: start: 20080109
  19. PROPOFOL [Concomitant]
     Indication: PRODUCT USED FOR UNKNOWN INDICATION
     Route: 042
     Dates: start: 20080109
  20. HEPARIN SODIUM INJECTION [Suspect]
     Route: 040
     Dates: start: 20080113, end: 20080113
  21. FLAGYL [Concomitant]
     Indication: PRODUCT USED FOR UNKNOWN INDICATION
     Route: 042
     Dates: start: 20080109

REACTIONS (15)
  - CARDIAC ARREST [None]
  - WRONG DRUG ADMINISTERED [None]
  - METABOLIC ACIDOSIS [None]
  - CARDIAC TAMPONADE [None]
  - MULTI-ORGAN FAILURE [None]
  - SEPSIS [None]
  - COAGULOPATHY [None]
  - PERICARDIAL EFFUSION [None]
  - HYPOTENSION [None]
  - CARDIOGENIC SHOCK [None]
  - RESPIRATORY FAILURE [None]
  - ISCHAEMIC HEPATITIS [None]
  - ANAEMIA [None]
  - ATRIAL SEPTAL DEFECT [None]
  - RENAL FAILURE [None]
